FAERS Safety Report 9950048 (Version 1)
Quarter: 2014Q1

REPORT INFORMATION
  Report Type: Report from Study
  Country: US (occurrence: US)
  Receive Date: 20140304
  Receipt Date: 20140304
  Transmission Date: 20141002
  Serious: No
  Sender: FDA-Public Use
  Company Number: US-ABBVIE-13P-163-1069319-00

PATIENT
  Age: 66 Year
  Sex: Female

DRUGS (9)
  1. HUMIRA [Suspect]
     Indication: COLITIS ULCERATIVE
     Dates: start: 20130319, end: 20130319
  2. HUMIRA [Suspect]
     Dates: start: 20130320, end: 20130320
  3. ASACOL [Concomitant]
     Indication: COLITIS
  4. AVAPRO [Concomitant]
     Indication: BLOOD PRESSURE
  5. HCTZ [Concomitant]
     Indication: BLOOD PRESSURE
  6. OMEPRAZOLE [Concomitant]
     Indication: PRODUCT USED FOR UNKNOWN INDICATION
  7. LEVOXYL [Concomitant]
     Indication: THYROID DISORDER
  8. LUCENTIS [Concomitant]
     Indication: MACULAR DEGENERATION
  9. AMBIEN CR [Concomitant]
     Indication: INSOMNIA

REACTIONS (2)
  - Injection site pain [Recovering/Resolving]
  - Injection site bruising [Recovering/Resolving]
